FAERS Safety Report 8381087-0 (Version None)
Quarter: 2012Q2

REPORT INFORMATION
  Report Type: 
  Country: None (occurrence: None)
  Receive Date: 20120503
  Receipt Date: 20120419
  Transmission Date: 20120825
  Serious: Yes (Life-Threatening)
  Sender: FDA-Public Use
  Company Number: 2012031976

PATIENT
  Age: 71 Year
  Sex: Male

DRUGS (1)
  1. ALBUMIN (HUMAN) [Suspect]
     Indication: OESOPHAGECTOMY
     Dosage: 160 ML, DAILY DOSE: 12.5 G / 250 ML INTRAVENOUS (NOT OTHERWISE SPECIFIED)
     Route: 042
     Dates: start: 20120315, end: 20120315

REACTIONS (4)
  - SHOCK [None]
  - CONTINUOUS HAEMODIAFILTRATION [None]
  - PROCEDURAL COMPLICATION [None]
  - RENAL FAILURE ACUTE [None]
